FAERS Safety Report 6506264-2 (Version None)
Quarter: 2009Q4

REPORT INFORMATION
  Report Type: 
  Country: None (occurrence: None)
  Receive Date: 20091218
  Receipt Date: 20091209
  Transmission Date: 20100525
  Serious: Yes (Hospitalization)
  Sender: FDA-Public Use
  Company Number: IT-GILEAD-2009-0025919

PATIENT
  Age: 59 Year
  Sex: Male

DRUGS (4)
  1. VIREAD [Suspect]
     Indication: HIV INFECTION
     Dates: end: 20091120
  2. ATRIPLA [Suspect]
     Indication: HIV INFECTION
     Dates: start: 20091120, end: 20091207
  3. COMBIVIR [Suspect]
  4. SUSTIVA [Suspect]

REACTIONS (1)
  - TOXIC EPIDERMAL NECROLYSIS [None]
